FAERS Safety Report 4610823-1 (Version None)
Quarter: 2005Q2

REPORT INFORMATION
  Report Type: 
  Country: None (occurrence: None)
  Receive Date: 20050225
  Receipt Date: 20041122
  Transmission Date: 20051028
  Serious: Yes (Other)
  Sender: FDA-Public Use
  Company Number: C2004-200-494

PATIENT
  Sex: Female
  Weight: 49.8957 kg

DRUGS (7)
  1. CEFAZOLIN [Suspect]
     Indication: ANTIBACTERIAL PROPHYLAXIS
     Dosage: 800MG/L ONCE IV
     Route: 042
     Dates: start: 20041110
  2. FENTANYL [Concomitant]
  3. MIDAZOLAM HCL [Concomitant]
  4. ZANTAC [Concomitant]
  5. PROPOFOL [Concomitant]
  6. RUBINOL [Concomitant]
  7. RIGLAN [Concomitant]

REACTIONS (1)
  - HYPERSENSITIVITY [None]
